FAERS Safety Report 7823639-X (Version None)
Quarter: 2011Q4

REPORT INFORMATION
  Report Type: 
  Country: None (occurrence: None)
  Receive Date: 20111019
  Receipt Date: 20111019
  Transmission Date: 20120403
  Serious: Yes (Life-Threatening)
  Sender: FDA-Public Use
  Company Number: None

PATIENT
  Sex: Male

DRUGS (1)
  1. BACTRIM DS [Suspect]
     Indication: STAPHYLOCOCCAL INFECTION
     Dosage: 1 TABLET
     Route: 048

REACTIONS (6)
  - PHARYNGEAL OEDEMA [None]
  - STAPHYLOCOCCAL INFECTION [None]
  - SKIN EXFOLIATION [None]
  - BLISTER [None]
  - NASAL CONGESTION [None]
  - GENITAL LESION [None]
